FAERS Safety Report 11113119 (Version 2)
Quarter: 2015Q2

REPORT INFORMATION
  Report Type: Report from Study
  Country: BR (occurrence: None)
  Receive Date: 20150512
  Receipt Date: 20150514
  Transmission Date: 20150821
  Serious: Yes (Other)
  Sender: FDA-Public Use
  Company Number: BR2015GSK062250

PATIENT
  Age: 43 Year
  Sex: Female
  Weight: 69.7 kg

DRUGS (3)
  1. LAMIVUDINE (LAMIVUDINE) UNKNOWN [Suspect]
     Active Substance: LAMIVUDINE
     Route: 048
     Dates: start: 20120724, end: 20150428
  2. ZIDOVUDINE (ZIDOVUDINE) UNKNOWN) [Suspect]
     Active Substance: ZIDOVUDINE
     Route: 048
     Dates: start: 20120724, end: 20150428
  3. LOPINAVIR+RITONAVIR (LOPINAVIR, RITONAVIR) UNKNOWN [Suspect]
     Active Substance: LOPINAVIR\RITONAVIR
     Route: 048
     Dates: start: 20120724

REACTIONS (1)
  - Neutropenia [None]

NARRATIVE: CASE EVENT DATE: 20150428
